FAERS Safety Report 4571982-2 (Version None)
Quarter: 2005Q1

REPORT INFORMATION
  Report Type: 
  Country: None (occurrence: None)
  Receive Date: 20050118
  Receipt Date: 20040820
  Transmission Date: 20050727
  Serious: Yes (Other)
  Sender: FDA-Public Use
  Company Number: HQWYE466520AUG04

PATIENT
  Age: 51 Year
  Sex: Female

DRUGS (1)
  1. PREMPRO [Suspect]
     Dosage: ^LOW DOSE^
     Dates: start: 19990101

REACTIONS (2)
  - DRUG INEFFECTIVE [None]
  - MYOCARDIAL INFARCTION [None]
